FAERS Safety Report 7777688-0 (Version None)
Quarter: 2011Q3

REPORT INFORMATION
  Report Type: 
  Country: None (occurrence: None)
  Receive Date: 20110926
  Receipt Date: 20110919
  Transmission Date: 20111222
  Serious: Yes (Hospitalization)
  Sender: FDA-Public Use
  Company Number: US-BAYER-US-2007-037612

PATIENT
  Age: 71 Year
  Sex: Male
  Weight: 80.726 kg

DRUGS (20)
  1. BETASERON [Suspect]
     Dosage: 8 MIU 3 X WEEK
     Dates: start: 20110101
  2. MULTI-VITAMINS [Concomitant]
     Dosage: UNK, 1X/DAY
  3. VANCOMYCIN [Concomitant]
     Dosage: DAILY DOSE 1500 MG
     Route: 042
     Dates: start: 20071005, end: 20071014
  4. NEXIUM [Concomitant]
     Dosage: DAILY DOSE 40 MG
     Route: 048
     Dates: start: 20050101
  5. ASPIRIN [Concomitant]
     Dosage: DAILY DOSE 81 MG
     Route: 048
     Dates: start: 20000101
  6. LUNESTA [Concomitant]
     Dosage: 2 MG, BED T.
  7. LANTUS [Concomitant]
     Dosage: 26 IU, 1X/DAY
     Route: 058
  8. BETASERON [Suspect]
     Indication: MULTIPLE SCLEROSIS
     Dosage: 8 MIU, EVERY 2D
     Route: 058
     Dates: start: 19961014
  9. BETASERON [Suspect]
     Dosage: 2 MIU, EVERY 2D
     Route: 058
  10. PLENDIL [Concomitant]
     Dosage: 2.5 MG, 2X/DAY
  11. COUMADIN [Concomitant]
     Indication: CARDIAC VALVE DISEASE
     Dosage: 4 MG, UNK
     Route: 048
     Dates: start: 20000101
  12. REGLAN [Concomitant]
     Dosage: 2.5 MG, 4X/DAY
     Route: 048
  13. BETASERON [Suspect]
     Dosage: UNK
     Dates: start: 20080115
  14. ATIVAN [Concomitant]
     Dosage: .5 MG, 2X/DAY
     Route: 048
  15. PRILOSEC [Concomitant]
     Dosage: 40 MG, 1X/DAY
  16. DILANTIN [Concomitant]
     Indication: CONVULSION
     Dosage: 200 MG, 2X/DAY
  17. INSULIN [Concomitant]
     Dosage: UNK, 3X/DAY
  18. LASIX [Concomitant]
     Dosage: 40 MG, 2X/DAY
     Route: 048
  19. GALANTAMINE HYDROBROMIDE [Concomitant]
     Indication: MEMORY IMPAIRMENT
     Dosage: DAILY DOSE 12 MG
     Route: 048
  20. SOTALOL HCL [Concomitant]
     Dosage: DAILY DOSE 80 MG

REACTIONS (6)
  - MOTOR DYSFUNCTION [None]
  - INJECTION SITE CELLULITIS [None]
  - THROMBOPHLEBITIS [None]
  - CONVULSION [None]
  - FALL [None]
  - INFECTION [None]
